FAERS Safety Report 7221817-4 (Version None)
Quarter: 2011Q1

REPORT INFORMATION
  Report Type: 
  Country: None (occurrence: None)
  Receive Date: 20110104
  Receipt Date: 20100323
  Transmission Date: 20110831
  Serious: Yes (Hospitalization)
  Sender: FDA-Public Use
  Company Number: DSA_42748_2010

PATIENT
  Age: 34 Year
  Sex: Female

DRUGS (5)
  1. MYSLEE [Concomitant]
  2. HERBESSER R (HERBESSER R - DILTIAZEM HYDROCHLORIDE) (100 MG, 200 MG) ( [Suspect]
     Indication: SINUS TACHYCARDIA
     Dosage: (100 MG QD ORAL), (AS NEEDED ORAL)
     Route: 048
     Dates: end: 20100211
  3. HERBESSER R (HERBESSER R - DILTIAZEM HYDROCHLORIDE) (100 MG, 200 MG) ( [Suspect]
     Indication: SINUS TACHYCARDIA
     Dosage: (100 MG QD ORAL), (AS NEEDED ORAL)
     Route: 048
     Dates: end: 20100211
  4. OMEPRAZOLE [Concomitant]
  5. POLAPREZINC [Concomitant]

REACTIONS (11)
  - FALL [None]
  - HAEMOGLOBIN DECREASED [None]
  - HAEMATOCRIT DECREASED [None]
  - ASPARTATE AMINOTRANSFERASE INCREASED [None]
  - HYPOTENSION [None]
  - GAMMA-GLUTAMYLTRANSFERASE INCREASED [None]
  - LOSS OF CONSCIOUSNESS [None]
  - ATRIOVENTRICULAR BLOCK COMPLETE [None]
  - ATRIOVENTRICULAR BLOCK FIRST DEGREE [None]
  - SICK SINUS SYNDROME [None]
  - BLOOD LACTATE DEHYDROGENASE INCREASED [None]
